FAERS Safety Report 8042539 (Version 3)
Quarter: 2012Q4

REPORT INFORMATION
  Report Type: Report from Study
  Country: US (occurrence: US)
  Receive Date: 20110718
  Receipt Date: 20121024
  Transmission Date: 20130627
  Serious: Yes (Hospitalization)
  Sender: FDA-Public Use
  Company Number: US-JNJFOC-20110703906

PATIENT
  Age: 9 Year
  Sex: Female
  Weight: 23.4 kg

DRUGS (15)
  1. REMICADE [Suspect]
     Indication: INFLAMMATORY BOWEL DISEASE
     Route: 042
     Dates: start: 20110309
  2. REMICADE [Suspect]
     Indication: INFLAMMATORY BOWEL DISEASE
     Route: 042
     Dates: start: 20110427
  3. MIRALAX [Concomitant]
  4. 5-ASA [Concomitant]
     Route: 048
  5. BUDESONIDE [Concomitant]
  6. CLONIDINE [Concomitant]
  7. ABILIFY [Concomitant]
  8. ALBUTEROL [Concomitant]
  9. PULMICORT [Concomitant]
  10. CHOLESTYRAMINE [Concomitant]
  11. CLARITIN [Concomitant]
  12. OMEPRAZOLE [Concomitant]
  13. CROMOLYN SODIUM [Concomitant]
     Route: 047
  14. CONCERTA [Concomitant]
  15. FLONASE [Concomitant]
     Route: 045

REACTIONS (3)
  - Tibia fracture [Recovered/Resolved]
  - Fibula fracture [Recovered/Resolved]
  - Pubis fracture [Recovered/Resolved]
